FAERS Safety Report 8555401 (Version 2)
Quarter: 2012Q4

REPORT INFORMATION
  Report Type: 
  Country: US (occurrence: US)
  Receive Date: 20120510
  Receipt Date: 20120831
  Transmission Date: 20130627
  Serious: Yes (Hospitalization)
  Sender: FDA-Public Use
  Company Number: US-BAYER-2012-044848

PATIENT
  Age: 22 Year
  Sex: Female
  Weight: 52.15 kg

DRUGS (3)
  1. YAZ [Suspect]
     Indication: ACNE
     Dosage: UNK
     Dates: start: 20080220, end: 20100407
  2. YAZ [Suspect]
     Indication: CONTRACEPTION
  3. TYLENOL EXTRA STRENGTH [Concomitant]
     Dosage: 325 mg, PRN
     Route: 048

REACTIONS (3)
  - Cholelithiasis [None]
  - Injury [None]
  - Pain [None]
